FAERS Safety Report 19513941 (Version 1)
Quarter: 2021Q3

REPORT INFORMATION
  Report Type: Spontaneous
  Country: US (occurrence: US)
  Receive Date: 20210709
  Receipt Date: 20210709
  Transmission Date: 20211014
  Serious: No
  Sender: FDA-Public Use
  Company Number: US-AVEO ONCOLOGY-2021-AVEO-US003367

PATIENT

DRUGS (1)
  1. FOTIVDA [Suspect]
     Active Substance: TIVOZANIB HYDROCHLORIDE
     Indication: RENAL CANCER
     Dosage: 1.34 MG, 1 CAPSULE BY MOUTH DAILY FOR 21 DAYS
     Route: 048

REACTIONS (3)
  - Nausea [Unknown]
  - Decreased appetite [Unknown]
  - Memory impairment [Unknown]
